FAERS Safety Report 15839122 (Version 1)
Quarter: 2018Q4

REPORT INFORMATION
  Report Type: Spontaneous
  Country: US (occurrence: US)
  Receive Date: 20181224
  Receipt Date: 20181224
  Transmission Date: 20190205
  Serious: No
  Sender: FDA-Public Use
  Company Number: None

PATIENT
  Age: 10 Year
  Sex: Female
  Weight: 42.64 kg

DRUGS (1)
  1. ENBREL [Suspect]
     Active Substance: ETANERCEPT
     Indication: JUVENILE IDIOPATHIC ARTHRITIS
     Dosage: INJECT 25MG (1  ML) SUBCUTANEOUSLY TWO TIMES A  WEEK?72 - 96 HOURS APART AS DIRECTED?
     Route: 058
     Dates: start: 201808

REACTIONS (1)
  - Ligament sprain [None]
